FAERS Safety Report 8812951 (Version 3)
Quarter: 2012Q4

REPORT INFORMATION
  Report Type: Report from Study
  Country: JP (occurrence: JP)
  Receive Date: 20120927
  Receipt Date: 20121218
  Transmission Date: 20130627
  Serious: Yes (Death, Other)
  Sender: FDA-Public Use
  Company Number: JP-ROCHE-737192

PATIENT
  Age: 65 None
  Sex: Male

DRUGS (21)
  1. BEVACIZUMAB [Suspect]
     Indication: LUNG ADENOCARCINOMA METASTATIC
     Route: 041
     Dates: start: 20101006, end: 20101006
  2. BEVACIZUMAB [Suspect]
     Route: 041
     Dates: start: 20101101, end: 20101101
  3. BEVACIZUMAB [Suspect]
     Route: 041
     Dates: start: 20101122, end: 20101122
  4. BEVACIZUMAB [Suspect]
     Route: 041
     Dates: start: 20101214, end: 20101214
  5. BEVACIZUMAB [Suspect]
     Route: 041
     Dates: start: 20110122, end: 20110122
  6. CARBOPLATIN [Suspect]
     Indication: LUNG ADENOCARCINOMA METASTATIC
     Route: 041
     Dates: start: 20101006, end: 20101006
  7. CARBOPLATIN [Suspect]
     Route: 041
     Dates: start: 20101101, end: 20101101
  8. CARBOPLATIN [Suspect]
     Route: 041
     Dates: start: 20101122, end: 20101122
  9. CARBOPLATIN [Suspect]
     Route: 041
     Dates: start: 20101214, end: 20101214
  10. CARBOPLATIN [Suspect]
     Route: 041
     Dates: start: 20110122, end: 20110122
  11. PEMETREXED [Suspect]
     Indication: LUNG ADENOCARCINOMA METASTATIC
     Route: 041
     Dates: start: 20101006, end: 20101006
  12. PEMETREXED [Suspect]
     Route: 041
     Dates: start: 20101101, end: 20101101
  13. PEMETREXED [Suspect]
     Route: 041
     Dates: start: 20101122, end: 20101122
  14. PEMETREXED [Suspect]
     Route: 041
     Dates: start: 20101214, end: 20101214
  15. PEMETREXED [Suspect]
     Route: 041
     Dates: start: 20110122, end: 20110122
  16. ASPIRIN [Suspect]
     Indication: PRODUCT USED FOR UNKNOWN INDICATION
     Route: 048
  17. RENIVACE [Concomitant]
     Route: 048
  18. FOLIAMIN [Concomitant]
     Route: 048
  19. GASTROM [Concomitant]
     Route: 048
  20. CODEINE PHOSPHATE [Concomitant]
     Route: 048
  21. DEPAS [Concomitant]
     Route: 048

REACTIONS (7)
  - Interstitial lung disease [Fatal]
  - Lung adenocarcinoma metastatic [Fatal]
  - Pneumonia [Unknown]
  - Atypical pneumonia [Unknown]
  - Cardiac failure [Unknown]
  - Thrombocytopenia [Recovering/Resolving]
  - Haemoptysis [Recovered/Resolved]
